FAERS Safety Report 14765573 (Version 2)
Quarter: 2018Q3

REPORT INFORMATION
  Report Type: Report from Study
  Country: IT (occurrence: IT)
  Receive Date: 20180416
  Receipt Date: 20180720
  Transmission Date: 20181010
  Serious: Yes (Death)
  Sender: FDA-Public Use
  Company Number: IT-PFIZER INC-2018153027

PATIENT

DRUGS (15)
  1. RITUXIMAB. [Suspect]
     Active Substance: RITUXIMAB
     Dosage: 375 MG/M2, CYCLIC (DAY+8, AND DAY+ 18)
  2. VINCRISTINE SULFATE. [Suspect]
     Active Substance: VINCRISTINE SULFATE
     Indication: LYMPHOMA
     Dosage: 1.2 MG/M2, CYCLIC (ON DAYS 1,14 AND 28)
  3. DOXORUBICIN HCL [Suspect]
     Active Substance: DOXORUBICIN HYDROCHLORIDE
     Indication: LYMPHOMA
     Dosage: 50 MG/M2, CYCLIC (ON DAY 1)
  4. MITOXANTRONE [Suspect]
     Active Substance: MITOXANTRONE HYDROCHLORIDE
     Indication: LYMPHOMA
     Dosage: 60 MG/M2, CYCLIC (ON DAY ?5)
  5. TRIMETOPRIM SULFAMETOXAZOL [Concomitant]
     Active Substance: SULFAMETHOXAZOLE\TRIMETHOPRIM
     Indication: PROPHYLAXIS
     Dosage: [SULPHAMETOXAZOLE]1600/ [TRIMETOPRIM] 320 MG, 2X/WEEK
  6. ACICLOVIR [Concomitant]
     Active Substance: ACYCLOVIR
     Indication: ANTIVIRAL PROPHYLAXIS
     Dosage: 1600 MG, DAILY (+90 DAYS AFTER AUTOTRANSPLANT)
  7. ARACYTIN [Suspect]
     Active Substance: CYTARABINE
     Indication: LYMPHOMA
     Dosage: 2000 MG/M2, CYCLIC (2X/DAY FOR 6 DAYS)
  8. DOXORUBICIN HCL [Suspect]
     Active Substance: DOXORUBICIN HYDROCHLORIDE
     Dosage: 75 MG/M2, CYCLIC ON DAY 14 AND 28
  9. ETOPOSIDE. [Suspect]
     Active Substance: ETOPOSIDE
     Indication: LYMPHOMA
     Dosage: 2400 MG/M2, CYCLIC (DAY +1)
  10. CYCLOPHOSPHAMIDE. [Suspect]
     Active Substance: CYCLOPHOSPHAMIDE
     Indication: LYMPHOMA
     Dosage: 7000 MG/M2, CYCLIC (DAY 1)
  11. PREDNISONE. [Suspect]
     Active Substance: PREDNISONE
     Dosage: DISCONTINUED WITH TAPERING
  12. RITUXIMAB. [Suspect]
     Active Substance: RITUXIMAB
     Indication: LYMPHOMA
     Dosage: 375 MG/M2, CYCLIC PER DOSE (DAY +2 AND +10)
  13. CISPLATIN. [Suspect]
     Active Substance: CISPLATIN
     Indication: LYMPHOMA
     Dosage: 100 MG/M2, CYCLIC (DAY +2)
  14. PREDNISONE. [Suspect]
     Active Substance: PREDNISONE
     Indication: LYMPHOMA
     Dosage: 50 MG/M2, CYCLIC (DAYS 1?22)
  15. MELPHALAN. [Suspect]
     Active Substance: MELPHALAN
     Indication: LYMPHOMA
     Dosage: 180 MG/M2, CYCLIC (ON DAY ?2)

REACTIONS (1)
  - Pneumonia [Fatal]
